FAERS Safety Report 8896105 (Version 1)
Quarter: 2012Q4

REPORT INFORMATION
  Report Type: 
  Country: None (occurrence: FR)
  Receive Date: 20121108
  Receipt Date: 20121108
  Transmission Date: 20130627
  Serious: Yes (Other)
  Sender: FDA-Public Use
  Company Number: FR-EISAI INC-E2090-02388-SPO-FR

PATIENT
  Sex: Male

DRUGS (8)
  1. ZONEGRAN [Suspect]
     Indication: EPILEPSY
     Route: 048
     Dates: start: 201111
  2. KEPPRA [Concomitant]
  3. TEGRETOL [Concomitant]
  4. AMLOR [Concomitant]
  5. LACTULOSE [Concomitant]
  6. DEXERYL [Concomitant]
  7. CERULYSE [Concomitant]
  8. BIPRETERAX [Concomitant]

REACTIONS (2)
  - Malnutrition [Not Recovered/Not Resolved]
  - Weight decreased [Not Recovered/Not Resolved]
